FAERS Safety Report 8620640-3 (Version None)
Quarter: 2012Q3

REPORT INFORMATION
  Report Type: 
  Country: None (occurrence: None)
  Receive Date: 20120824
  Receipt Date: 20120813
  Transmission Date: 20120928
  Serious: Yes (Hospitalization)
  Sender: FDA-Public Use
  Company Number: MX-ELI_LILLY_AND_COMPANY-MX201208004159

PATIENT
  Age: 41 Year
  Sex: Female
  Weight: 90 kg

DRUGS (2)
  1. HUMULIN R [Suspect]
     Dosage: UNK, UNKNOWN
  2. HUMULIN N [Suspect]
     Indication: DIABETES MELLITUS
     Dosage: 50 U, UNKNOWN
     Route: 058
     Dates: start: 20080101

REACTIONS (2)
  - DRUG DISPENSING ERROR [None]
  - GASTRECTOMY [None]
